FAERS Safety Report 16371766 (Version 2)
Quarter: 2019Q3

REPORT INFORMATION
  Report Type: Spontaneous
  Country: US (occurrence: US)
  Receive Date: 20190530
  Receipt Date: 20190701
  Transmission Date: 20191004
  Serious: No
  Sender: FDA-Public Use
  Company Number: US-PFIZER INC-2019230609

PATIENT
  Age: 78 Year
  Sex: Male

DRUGS (1)
  1. PREMARIN [Suspect]
     Active Substance: ESTROGENS, CONJUGATED
     Dosage: UNK
     Dates: start: 1982

REACTIONS (3)
  - Incorrect product administration duration [Unknown]
  - Thinking abnormal [Unknown]
  - Pain [Unknown]
